FAERS Safety Report 7783091-X (Version None)
Quarter: 2011Q3

REPORT INFORMATION
  Report Type: 
  Country: None (occurrence: None)
  Receive Date: 20110928
  Receipt Date: 20110925
  Transmission Date: 20111222
  Serious: No
  Sender: FDA-Public Use
  Company Number: US-PFIZER INC-2011227915

PATIENT
  Sex: Female
  Weight: 59 kg

DRUGS (1)
  1. ALESSE [Suspect]
     Indication: CONTRACEPTION
     Dosage: UNK, 1X/DAY
     Route: 048
     Dates: start: 20100901, end: 20110923

REACTIONS (3)
  - DYSMENORRHOEA [None]
  - METRORRHAGIA [None]
  - POOR QUALITY DRUG ADMINISTERED [None]
